FAERS Safety Report 14794485 (Version 5)
Quarter: 2020Q1

REPORT INFORMATION
  Report Type: Spontaneous
  Country: US (occurrence: US)
  Receive Date: 20180423
  Receipt Date: 20200311
  Transmission Date: 20200409
  Serious: Yes (Other)
  Sender: FDA-Public Use
  Company Number: US-ASTRAZENECA-2018SE49680

PATIENT
  Age: 70 Year
  Sex: Female
  Weight: 72.6 kg

DRUGS (39)
  1. DEXILANT [Suspect]
     Active Substance: DEXLANSOPRAZOLE
     Route: 065
  2. PRAVACHOL [Concomitant]
     Active Substance: PRAVASTATIN SODIUM
  3. IRBESARTAN. [Concomitant]
     Active Substance: IRBESARTAN
     Indication: HYPERTENSION
     Dates: start: 2012
  4. DICYCLOMINE [Concomitant]
     Active Substance: DICYCLOMINE HYDROCHLORIDE
     Indication: IRRITABLE BOWEL SYNDROME
     Dates: start: 2017
  5. PRAVASTATIN. [Concomitant]
     Active Substance: PRAVASTATIN
  6. PREGABAL [Concomitant]
     Indication: PAIN
  7. POTASSIUM [Concomitant]
     Active Substance: POTASSIUM
  8. MOBIC [Concomitant]
     Active Substance: MELOXICAM
  9. AZITHROMYCIN ANHYDROUS. [Concomitant]
     Active Substance: AZITHROMYCIN ANHYDROUS
     Indication: INFECTION
     Dates: start: 2016
  10. TYLENOL [Concomitant]
     Active Substance: ACETAMINOPHEN
  11. TUMS [Concomitant]
     Active Substance: CALCIUM CARBONATE
  12. ZYRTEC [Concomitant]
     Active Substance: CETIRIZINE HYDROCHLORIDE
  13. NORVASC [Concomitant]
     Active Substance: AMLODIPINE BESYLATE
  14. FOLIC ACID. [Concomitant]
     Active Substance: FOLIC ACID
  15. NEXIUM 24HR [Suspect]
     Active Substance: ESOMEPRAZOLE MAGNESIUM
     Route: 048
  16. PRILOSEC [Suspect]
     Active Substance: OMEPRAZOLE MAGNESIUM
     Indication: GASTROOESOPHAGEAL REFLUX DISEASE
     Dosage: GENERIC
     Route: 065
  17. PRILOSEC OTC [Suspect]
     Active Substance: OMEPRAZOLE MAGNESIUM
     Route: 048
  18. PREVACID [Suspect]
     Active Substance: LANSOPRAZOLE
     Route: 065
  19. TERAZOSIN [Concomitant]
     Active Substance: TERAZOSIN HYDROCHLORIDE
     Dates: start: 2010
  20. FUROSEMIDE. [Concomitant]
     Active Substance: FUROSEMIDE
     Indication: FLUID RETENTION
     Dates: start: 2010
  21. ZANTAC [Concomitant]
     Active Substance: RANITIDINE HYDROCHLORIDE
  22. AVAPRO [Concomitant]
     Active Substance: IRBESARTAN
  23. PLAVIX [Concomitant]
     Active Substance: CLOPIDOGREL BISULFATE
  24. FISH OIL [Concomitant]
     Active Substance: FISH OIL
  25. NEXIUM [Suspect]
     Active Substance: ESOMEPRAZOLE MAGNESIUM
     Route: 048
  26. PRILOSEC [Suspect]
     Active Substance: OMEPRAZOLE MAGNESIUM
     Indication: GASTROOESOPHAGEAL REFLUX DISEASE
     Route: 048
     Dates: start: 1986
  27. PREVACID 24 HR [Suspect]
     Active Substance: LANSOPRAZOLE
     Route: 065
  28. LEVOFLOXACIN. [Concomitant]
     Active Substance: LEVOFLOXACIN
  29. ASPIRIN. [Concomitant]
     Active Substance: ASPIRIN
     Dates: start: 20110519
  30. AMLODIPINE [Concomitant]
     Active Substance: AMLODIPINE BESYLATE
     Indication: HYPERTENSION
  31. MELOXICAM. [Concomitant]
     Active Substance: MELOXICAM
     Indication: INFECTION
     Dates: start: 2015, end: 2018
  32. PROTONIX [Suspect]
     Active Substance: PANTOPRAZOLE SODIUM
     Route: 065
  33. CLOPIDOGREL [Concomitant]
     Active Substance: CLOPIDOGREL BISULFATE
     Indication: CARDIAC FAILURE
     Dates: start: 2018
  34. ROLAIDS [Concomitant]
     Active Substance: CALCIUM CARBONATE\MAGNESIUM HYDROXIDE
  35. POTASSIUM CHLORIDE. [Concomitant]
     Active Substance: POTASSIUM CHLORIDE
  36. PRILOSEC [Suspect]
     Active Substance: OMEPRAZOLE MAGNESIUM
     Indication: GASTROOESOPHAGEAL REFLUX DISEASE
     Route: 048
  37. HYDROCHLOROTHIAZIDE. [Concomitant]
     Active Substance: HYDROCHLOROTHIAZIDE
  38. PRAVASTATIN. [Concomitant]
     Active Substance: PRAVASTATIN
     Indication: BLOOD CHOLESTEROL INCREASED
     Dates: start: 2015
  39. BENTYL [Concomitant]
     Active Substance: DICYCLOMINE HYDROCHLORIDE

REACTIONS (4)
  - Renal injury [Unknown]
  - Chronic kidney disease [Not Recovered/Not Resolved]
  - Rebound acid hypersecretion [Unknown]
  - Renal failure [Unknown]

NARRATIVE: CASE EVENT DATE: 2011
